FAERS Safety Report 13888688 (Version 1)
Quarter: 2017Q3

REPORT INFORMATION
  Report Type: Spontaneous
  Country: US (occurrence: US)
  Receive Date: 20170822
  Receipt Date: 20170822
  Transmission Date: 20171127
  Serious: No
  Sender: FDA-Public Use
  Company Number: US-ROCHE-1157687

PATIENT
  Age: 62 Year
  Sex: Female

DRUGS (5)
  1. SOLU-MEDROL [Concomitant]
     Active Substance: METHYLPREDNISOLONE SODIUM SUCCINATE
  2. ACTEMRA [Suspect]
     Active Substance: TOCILIZUMAB
     Indication: PRODUCT USED FOR UNKNOWN INDICATION
     Route: 065
     Dates: start: 20120627, end: 20120627
  3. CLARITIN [Concomitant]
     Active Substance: LORATADINE
  4. CLARITIN [Concomitant]
     Active Substance: LORATADINE
  5. MEDROL [Concomitant]
     Active Substance: METHYLPREDNISOLONE

REACTIONS (4)
  - Eye oedema [Unknown]
  - Eye irritation [Unknown]
  - Eye swelling [Recovered/Resolved]
  - Eye pruritus [Recovered/Resolved]

NARRATIVE: CASE EVENT DATE: 20130627
